FAERS Safety Report 5058267-5 (Version None)
Quarter: 2006Q2

REPORT INFORMATION
  Report Type: 
  Country: None (occurrence: None)
  Receive Date: 20060622
  Receipt Date: 20060425
  Transmission Date: 20061013
  Serious: Yes (Hospitalization)
  Sender: FDA-Public Use
  Company Number: US-JNJFOC-20060201452

PATIENT
  Age: 43 Year
  Sex: Male
  Weight: 97.977 kg

DRUGS (4)
  1. DURAGESIC-100 [Suspect]
     Indication: PAIN
     Dosage: 150 UG/HR 1 IN 48 HOUR TRANSDERMAL
     Route: 062
     Dates: start: 20060101
  2. FLEXERIL [Concomitant]
  3. RESTORIL [Concomitant]
  4. LIPITOR [Concomitant]

REACTIONS (4)
  - ANXIETY [None]
  - DIZZINESS [None]
  - DRUG INEFFECTIVE [None]
  - HEART RATE INCREASED [None]
